FAERS Safety Report 21633678 (Version 1)
Quarter: 2022Q4

REPORT INFORMATION
  Report Type: Other
  Country: None (occurrence: JP)
  Receive Date: 20221123
  Receipt Date: 20221123
  Transmission Date: 20230113
  Serious: Yes (Life-Threatening, Hospitalization, Other)
  Sender: FDA-Public Use
  Company Number: JP-Breckenridge Pharmaceutical, Inc.-2135190

PATIENT
  Age: 80 Year
  Sex: Male

DRUGS (5)
  1. APIXABAN [Suspect]
     Active Substance: APIXABAN
     Indication: Atrial fibrillation
     Route: 048
  2. ENALAPRIL MALEATE [Concomitant]
     Active Substance: ENALAPRIL MALEATE
  3. ROSUVASTATIN [Concomitant]
     Active Substance: ROSUVASTATIN
  4. CEFAZOLIN SODIUM [Interacting]
     Active Substance: CEFAZOLIN SODIUM
  5. LOXOPROFEN [Concomitant]
     Active Substance: LOXOPROFEN

REACTIONS (3)
  - Pulmonary alveolar haemorrhage [Unknown]
  - Drug interaction [Recovered/Resolved]
  - Respiratory failure [Recovered/Resolved]
